FAERS Safety Report 21076062 (Version 1)
Quarter: 2022Q3

REPORT INFORMATION
  Report Type: Report from Study
  Country: GB (occurrence: GB)
  Receive Date: 20220713
  Receipt Date: 20220713
  Transmission Date: 20221026
  Serious: Yes (Life-Threatening)
  Sender: FDA-Public Use
  Company Number: GB-PFIZER INC-2018032783

PATIENT
  Sex: Male
  Weight: 36.6 kg

DRUGS (17)
  1. GEMTUZUMAB OZOGAMICIN [Suspect]
     Active Substance: GEMTUZUMAB OZOGAMICIN
     Indication: Acute myeloid leukaemia
     Dosage: 3.5 MG, UNK
     Route: 042
     Dates: start: 20180108, end: 20180115
  2. MITOXANTRONE HYDROCHLORIDE [Suspect]
     Active Substance: MITOXANTRONE HYDROCHLORIDE
     Indication: Acute myeloid leukaemia
     Dosage: 12 MG/M2, DAILY
     Route: 042
     Dates: start: 20180104, end: 20180108
  3. AMBISOME [Concomitant]
     Active Substance: AMPHOTERICIN B
     Indication: Antifungal treatment
     Dosage: 90 MG, 2X/WEEK
     Dates: start: 20180105
  4. APREPITANT [Concomitant]
     Active Substance: APREPITANT
     Indication: Antiemetic supportive care
     Dosage: 110 MG, 1X/DAY
     Dates: start: 20180105, end: 20180108
  5. CHLORHEXIDINE [Concomitant]
     Active Substance: CHLORHEXIDINE
     Indication: Tonsillitis
     Dosage: 10 ML, 2X/DAY
     Dates: start: 20180104, end: 20180111
  6. METOCLOPRAMIDE [Concomitant]
     Active Substance: METOCLOPRAMIDE
     Indication: Prophylaxis
     Dosage: 4 MG, 3X/DAY
     Dates: start: 20180104
  7. CLINDAMYCIN [Concomitant]
     Active Substance: CLINDAMYCIN
     Indication: Antibiotic therapy
     Dosage: 360 MG, 1X/DAY
     Dates: start: 20180102, end: 20180109
  8. MORPHINE [Concomitant]
     Active Substance: MORPHINE
     Indication: Pain
     Dosage: 36 MG, AS NEEDED
     Dates: start: 20180104
  9. ONDANSETRON [Concomitant]
     Active Substance: ONDANSETRON
     Indication: Prophylaxis
     Dosage: 6 MG, 3X/DAY
     Dates: start: 20180104
  10. ACETAMINOPHEN [Concomitant]
     Active Substance: ACETAMINOPHEN
     Indication: Pyrexia
     Dosage: 500 MG, AS NEEDED
     Dates: start: 20180104
  11. ACETAMINOPHEN [Concomitant]
     Active Substance: ACETAMINOPHEN
     Indication: Pain
  12. PHYTONADIONE [Concomitant]
     Active Substance: PHYTONADIONE
     Indication: Vitamin K
     Dosage: 10 MG, AS NEEDED
     Dates: start: 20180102, end: 20180122
  13. PIPERACILLIN AND TAZOBACTAM [Concomitant]
     Active Substance: PIPERACILLIN SODIUM\TAZOBACTAM SODIUM
     Indication: Febrile neutropenia
     Dosage: 3.3 G, 1X/DAY
     Dates: start: 20180101, end: 20180115
  14. POTASSIUM CHLORIDE [Concomitant]
     Active Substance: POTASSIUM CHLORIDE
     Indication: Hypokalaemia
     Dosage: 18.3 MMOL, AS NEEDED
     Dates: start: 20180104, end: 20180104
  15. RANITIDINE [Concomitant]
     Active Substance: RANITIDINE
     Indication: Prophylaxis
     Dosage: 35 MG, 3X/DAY
     Dates: start: 20180120
  16. TEICOPLANIN [Concomitant]
     Active Substance: TEICOPLANIN
     Indication: Antibiotic therapy
     Dosage: 330 MG, UNK (SR)
     Route: 042
     Dates: start: 20180115, end: 20180115
  17. CHLORPHENIRAMINE MALEATE [Concomitant]
     Active Substance: CHLORPHENIRAMINE MALEATE
     Indication: Antiallergic therapy
     Dosage: 5 MG, UNK (SR)
     Route: 042
     Dates: start: 20180103

REACTIONS (2)
  - Appendicitis [Recovered/Resolved]
  - Infection [Recovered/Resolved]

NARRATIVE: CASE EVENT DATE: 20180120
